FAERS Safety Report 5129669-3 (Version None)
Quarter: 2006Q4

REPORT INFORMATION
  Report Type: 
  Country: None (occurrence: None)
  Receive Date: 20061018
  Receipt Date: 20061016
  Transmission Date: 20070319
  Serious: Yes (Other)
  Sender: FDA-Public Use
  Company Number: US-GLAXOSMITHKLINE-A0623729A

PATIENT
  Age: 70 Year
  Sex: Female

DRUGS (6)
  1. AVANDIA [Suspect]
     Dosage: 8MG PER DAY
     Route: 048
     Dates: start: 20060601
  2. ZIAC [Concomitant]
  3. LIPITOR [Concomitant]
  4. ASPIRIN [Concomitant]
  5. MULTI-VITAMIN [Concomitant]
  6. ESTROVEN [Concomitant]

REACTIONS (3)
  - ALOPECIA [None]
  - ANAEMIA [None]
  - SYSTEMIC LUPUS ERYTHEMATOSUS [None]
